FAERS Safety Report 8819951 (Version 1)
Quarter: 2012Q4

REPORT INFORMATION
  Report Type: 
  Country: US (occurrence: US)
  Receive Date: 20121001
  Receipt Date: 20121001
  Transmission Date: 20130627
  Serious: Yes (Hospitalization)
  Sender: FDA-Public Use
  Company Number: US-ALEXION-A201201575

PATIENT
  Age: 78 Year
  Sex: Male

DRUGS (4)
  1. SOLIRIS 300MG [Suspect]
     Indication: PAROXYSMAL NOCTURNAL HAEMOGLOBINURIA
     Dosage: 0.5 mL, UNK
     Route: 042
     Dates: end: 20120518
  2. VENLAFAXINE [Concomitant]
     Indication: DEPRESSION
     Dosage: 50 mg, bid
  3. MORPHINE [Concomitant]
     Indication: ARTHRITIS
     Dosage: 10 mg, qd
  4. PREDNISONE [Concomitant]
     Dosage: .5 DF, qod

REACTIONS (5)
  - Transfusion [Unknown]
  - Hypersomnia [Unknown]
  - Apathy [Unknown]
  - Contusion [Unknown]
  - Asthenia [Unknown]
